FAERS Safety Report 18117073 (Version 1)
Quarter: 2020Q3

REPORT INFORMATION
  Report Type: Report from Study
  Country: GB (occurrence: GB)
  Receive Date: 20200806
  Receipt Date: 20200806
  Transmission Date: 20201103
  Serious: Yes (Hospitalization, Other)
  Sender: FDA-Public Use
  Company Number: GB-IPSEN GROUP, RESEARCH AND DEVELOPMENT-2020-02529

PATIENT
  Age: 71 Year
  Sex: Female

DRUGS (1)
  1. SOMATULINE AUTOGEL [Suspect]
     Active Substance: LANREOTIDE ACETATE
     Indication: NEUROENDOCRINE TUMOUR
     Route: 058
     Dates: start: 202001

REACTIONS (4)
  - Injection site pain [Unknown]
  - Pneumonia [Recovering/Resolving]
  - Cachexia [Unknown]
  - Decubitus ulcer [Recovering/Resolving]

NARRATIVE: CASE EVENT DATE: 202001
